FAERS Safety Report 7145429-6 (Version None)
Quarter: 2010Q4

REPORT INFORMATION
  Report Type: 
  Country: None (occurrence: None)
  Receive Date: 20101208
  Receipt Date: 20101130
  Transmission Date: 20110411
  Serious: Yes (Hospitalization)
  Sender: FDA-Public Use
  Company Number: CA-ROCHE-745730

PATIENT
  Sex: Female

DRUGS (11)
  1. TOCILIZUMAB [Suspect]
     Indication: RHEUMATOID ARTHRITIS
     Dosage: FORM: INFUSION
     Route: 042
     Dates: start: 20100809
  2. SYNTHROID [Concomitant]
  3. PREDNISONE [Concomitant]
  4. FOSAMAX [Concomitant]
  5. CALCIUM [Concomitant]
     Route: 048
  6. RAMIPRIL [Concomitant]
     Indication: BLOOD PRESSURE
  7. VITAMIN B-12 [Concomitant]
  8. METHOTREXATE [Concomitant]
     Route: 058
  9. FOLIC ACID [Concomitant]
  10. IRON [Concomitant]
  11. AGGRENOX [Concomitant]
     Route: 048

REACTIONS (9)
  - ARTHRALGIA [None]
  - ATRIAL FIBRILLATION [None]
  - BLOOD CHOLESTEROL INCREASED [None]
  - COUGH [None]
  - DYSPHONIA [None]
  - DYSPNOEA [None]
  - JOINT STIFFNESS [None]
  - JOINT SWELLING [None]
  - NASAL CONGESTION [None]
